FAERS Safety Report 9053046 (Version 1)
Quarter: 2013Q1

REPORT INFORMATION
  Report Type: Spontaneous
  Country: US (occurrence: US)
  Receive Date: 20130208
  Receipt Date: 20130208
  Transmission Date: 20140127
  Serious: No
  Sender: FDA-Public Use
  Company Number: US-BIOGENIDEC-2013BI009672

PATIENT
  Age: 43 Year
  Sex: Female

DRUGS (5)
  1. TYSABRI [Suspect]
     Indication: MULTIPLE SCLEROSIS
     Route: 042
     Dates: start: 20111223
  2. AVONEX [Concomitant]
     Indication: MULTIPLE SCLEROSIS
     Route: 030
  3. AVONEX [Concomitant]
     Indication: MULTIPLE SCLEROSIS
     Route: 030
     Dates: start: 20011105
  4. GILENYA [Concomitant]
  5. FLU SHOT [Concomitant]

REACTIONS (4)
  - Blindness unilateral [Not Recovered/Not Resolved]
  - Somnolence [Unknown]
  - Influenza [Recovered/Resolved]
  - Fatigue [Not Recovered/Not Resolved]
